FAERS Safety Report 21044128 (Version 1)
Quarter: 2022Q3

REPORT INFORMATION
  Report Type: Spontaneous
  Country: US (occurrence: US)
  Receive Date: 20220705
  Receipt Date: 20220705
  Transmission Date: 20221027
  Serious: No
  Sender: FDA-Public Use
  Company Number: US-Biofrontera-2021BIO00036

PATIENT
  Sex: Male

DRUGS (1)
  1. AMELUZ [Suspect]
     Active Substance: AMINOLEVULINIC ACID HYDROCHLORIDE
     Indication: Product used for unknown indication

REACTIONS (3)
  - Absence of immediate treatment response [Unknown]
  - Product odour abnormal [Unknown]
  - Product colour issue [Unknown]
